FAERS Safety Report 8223464-4 (Version None)
Quarter: 2012Q1

REPORT INFORMATION
  Report Type: 
  Country: None (occurrence: None)
  Receive Date: 20120321
  Receipt Date: 20120313
  Transmission Date: 20120608
  Serious: Yes (Hospitalization, Other)
  Sender: FDA-Public Use
  Company Number: UA-BAYER-2011-073200

PATIENT
  Age: 38 Year
  Sex: Female
  Weight: 79.819 kg

DRUGS (12)
  1. YAZ [Suspect]
     Indication: CONTRACEPTION
     Dosage: UNK
     Dates: start: 20071201, end: 20091028
  2. IBUPROFEN (ADVIL) [Concomitant]
  3. ASPIRIN [Concomitant]
     Dosage: , 325 DAILY UNK
  4. YAZ [Suspect]
  5. NEXIUM [Concomitant]
  6. PROZAC [Concomitant]
  7. PHENERGAN [Concomitant]
  8. LISINOPRIL [Concomitant]
  9. LORTAB [Concomitant]
  10. YAZ [Suspect]
     Indication: PREMENSTRUAL SYNDROME
  11. FLUOXETINE [Concomitant]
  12. ZOCOR [Concomitant]

REACTIONS (14)
  - TRANSIENT ISCHAEMIC ATTACK [None]
  - SPEECH DISORDER [None]
  - INJURY [None]
  - HYPOAESTHESIA [None]
  - HEADACHE [None]
  - GALLBLADDER INJURY [None]
  - BILIARY DYSKINESIA [None]
  - PAIN [None]
  - ABDOMINAL PAIN [None]
  - HYPOAESTHESIA ORAL [None]
  - EYE MOVEMENT DISORDER [None]
  - CHOLECYSTITIS [None]
  - PANIC REACTION [None]
  - CEREBROVASCULAR ACCIDENT [None]
